FAERS Safety Report 13943370 (Version 3)
Quarter: 2017Q4

REPORT INFORMATION
  Report Type: Spontaneous
  Country: JP (occurrence: JP)
  Receive Date: 20170907
  Receipt Date: 20171004
  Transmission Date: 20180320
  Serious: Yes (Hospitalization)
  Sender: FDA-Public Use
  Company Number: JP-ROCHE-1989704

PATIENT
  Age: 80 Year
  Sex: Male

DRUGS (4)
  1. LUCENTIS [Suspect]
     Active Substance: RANIBIZUMAB
     Indication: AGE-RELATED MACULAR DEGENERATION
     Dosage: 0.5 MG, LEFT EYE.
     Route: 031
     Dates: start: 20170715, end: 20170715
  2. AZOPT [Concomitant]
     Active Substance: BRINZOLAMIDE
     Indication: OPEN ANGLE GLAUCOMA
     Dosage: 1 GTT, TID
     Route: 047
     Dates: start: 20080430
  3. BRIMONIDINE TARTRATE. [Concomitant]
     Active Substance: BRIMONIDINE TARTRATE
     Indication: OPEN ANGLE GLAUCOMA
     Dosage: 1 GTT, BID?REPORTED AS AIPHAGAN
     Route: 047
     Dates: start: 20150414
  4. DUOTRAV [Concomitant]
     Active Substance: TIMOLOL MALEATE\TRAVOPROST
     Indication: OPEN ANGLE GLAUCOMA
     Dosage: 1 GTT, QD
     Route: 047
     Dates: start: 20120627

REACTIONS (1)
  - Cardiac valve disease [Recovering/Resolving]

NARRATIVE: CASE EVENT DATE: 20170814
